FAERS Safety Report 9736034 (Version 1)
Quarter: 2013Q4

REPORT INFORMATION
  Report Type: Spontaneous
  Country: US (occurrence: US)
  Receive Date: 20131206
  Receipt Date: 20131206
  Transmission Date: 20140711
  Serious: Yes (Other)
  Sender: FDA-Public Use
  Company Number: US-TEVA-449132USA

PATIENT
  Age: 57 Year
  Sex: Male

DRUGS (3)
  1. FLUOROURACIL [Suspect]
     Indication: INTESTINAL ADENOCARCINOMA
     Route: 065
     Dates: start: 201204, end: 201209
  2. FOLINIC ACID [Suspect]
     Indication: INTESTINAL ADENOCARCINOMA
     Route: 065
     Dates: start: 201204, end: 201209
  3. OXALIPLATIN INJECTION 50MG/10 ML+100MG/20ML [Suspect]
     Indication: INTESTINAL ADENOCARCINOMA
     Route: 065
     Dates: start: 201204, end: 201209

REACTIONS (3)
  - Arteriovenous fistula [Unknown]
  - Portal hypertension [Unknown]
  - Thrombocytopenia [Unknown]
